FAERS Safety Report 24793413 (Version 1)
Quarter: 2024Q4

REPORT INFORMATION
  Report Type: Spontaneous
  Country: US (occurrence: US)
  Receive Date: 20241231
  Receipt Date: 20241231
  Transmission Date: 20250115
  Serious: Yes (Other)
  Sender: GERON CORP
  Company Number: US-GERON CORPORATION-US-GER-24-000141

PATIENT
  Age: 79 Year
  Sex: Female

DRUGS (3)
  1. RYTELO [Suspect]
     Active Substance: IMETELSTAT SODIUM
     Indication: Myelodysplastic syndrome
     Dosage: 7.1 MILLIGRAM/KILOGRAM, 4W
     Route: 042
     Dates: start: 20240819, end: 20240913
  2. RYTELO [Suspect]
     Active Substance: IMETELSTAT SODIUM
     Indication: SF3B1 gene mutation
     Dosage: 5.6 MILLIGRAM/KILOGRAM, 4W
     Route: 042
     Dates: start: 20240927
  3. RYTELO [Suspect]
     Active Substance: IMETELSTAT SODIUM
     Dosage: 4.4 MILLIGRAM/KILOGRAM, 4W
     Route: 042
     Dates: start: 20241115

REACTIONS (1)
  - Neutrophil count decreased [Recovered/Resolved]

NARRATIVE: CASE EVENT DATE: 20240913
